FAERS Safety Report 12140815 (Version 1)
Quarter: 2016Q1

REPORT INFORMATION
  Report Type: Spontaneous
  Country: US (occurrence: None)
  Receive Date: 20160302
  Receipt Date: 20160302
  Transmission Date: 20160526
  Serious: Yes (Hospitalization)
  Sender: FDA-Public Use
  Company Number: None

PATIENT
  Age: 66 Year
  Sex: Male
  Weight: 95.26 kg

DRUGS (1)
  1. LUPRON [Suspect]
     Active Substance: LEUPROLIDE ACETATE
     Indication: PROSTATIC SPECIFIC ANTIGEN INCREASED
     Dates: start: 20160120

REACTIONS (2)
  - Pain in extremity [None]
  - Abasia [None]

NARRATIVE: CASE EVENT DATE: 20160212
